FAERS Safety Report 4692576-4 (Version None)
Quarter: 2005Q2

REPORT INFORMATION
  Report Type: 
  Country: None (occurrence: None)
  Receive Date: 20050617
  Receipt Date: 20050606
  Transmission Date: 20051028
  Serious: Yes (Other)
  Sender: FDA-Public Use
  Company Number: JP-ABBOTT-05P-087-0302871-00

PATIENT
  Age: 25 Year
  Sex: Female
  Weight: 85 kg

DRUGS (6)
  1. SEVOFLURANE [Suspect]
     Indication: GENERAL ANAESTHESIA
     Route: 055
  2. INDOMETHACIN [Concomitant]
     Indication: DRUG USE FOR UNKNOWN INDICATION
     Route: 048
  3. MAGNESIUM [Concomitant]
     Dosage: 1-2 GRAMS PER HOUR
     Route: 042
  4. CEFOTIAM HYDROCHLORIDE [Concomitant]
     Indication: AMNIOTIC FLUID VOLUME
     Route: 012
  5. ARTIFICIAL AMNIOTIC FLUID [Concomitant]
     Indication: AMNIOTIC FLUID VOLUME DECREASED
     Route: 012
  6. ARTIFICIAL AMNIOTIC FLUID [Concomitant]
     Indication: AMNIOTIC FLUID VOLUME

REACTIONS (1)
  - PREMATURE LABOUR [None]
